FAERS Safety Report 7213157-4 (Version None)
Quarter: 2010Q4

REPORT INFORMATION
  Report Type: 
  Country: None (occurrence: None)
  Receive Date: 20101227
  Receipt Date: 20101214
  Transmission Date: 20110411
  Serious: Yes (Hospitalization)
  Sender: FDA-Public Use
  Company Number: ALA_01093_2010

PATIENT
  Sex: Female

DRUGS (6)
  1. BIFERA [Suspect]
     Indication: PRODUCT USED FOR UNKNOWN INDICATION
     Dosage: DF ORAL
     Route: 048
     Dates: start: 20101001, end: 20101115
  2. LISINOPRIL [Concomitant]
  3. FELODIPINE [Concomitant]
  4. ELTROXIN [Concomitant]
  5. TRICOR [Concomitant]
  6. ROPINIROLE [Concomitant]

REACTIONS (4)
  - ABASIA [None]
  - ASTHENIA [None]
  - BLOOD IRON DECREASED [None]
  - BLOOD TEST ABNORMAL [None]
